FAERS Safety Report 8028574-2 (Version None)
Quarter: 2012Q1

REPORT INFORMATION
  Report Type: 
  Country: None (occurrence: None)
  Receive Date: 20120104
  Receipt Date: 20111226
  Transmission Date: 20120608
  Serious: Yes (Death)
  Sender: FDA-Public Use
  Company Number: 2011SP057865

PATIENT
  Age: 65 Year
  Sex: Male

DRUGS (4)
  1. DULOXETINE HYDROCHLORIDE [Concomitant]
  2. MIRTAZAPINE [Suspect]
     Indication: DEPRESSION
     Dosage: 15 MG;QD;PO, 22.5 MG;QD;PO
     Route: 048
     Dates: start: 20110825, end: 20111201
  3. BROMAZEPAM [Concomitant]
  4. CHINESE HERBAL MEDICINE [Concomitant]

REACTIONS (7)
  - LETHARGY [None]
  - DEPRESSIVE SYMPTOM [None]
  - CONDITION AGGRAVATED [None]
  - INSOMNIA [None]
  - REFUSAL OF TREATMENT BY PATIENT [None]
  - ASPHYXIA [None]
  - COMPLETED SUICIDE [None]
